FAERS Safety Report 7079063-3 (Version None)
Quarter: 2010Q4

REPORT INFORMATION
  Report Type: 
  Country: None (occurrence: None)
  Receive Date: 20101102
  Receipt Date: 20101027
  Transmission Date: 20110411
  Serious: Yes (Death)
  Sender: FDA-Public Use
  Company Number: RS-SANOFI-AVENTIS-A01200909704

PATIENT
  Age: 69 Year
  Sex: Female

DRUGS (8)
  1. OXALIPLATIN [Suspect]
     Route: 041
  2. FLUOROURACIL [Suspect]
     Route: 041
  3. INVESTIGATIONAL DRUG [Concomitant]
     Dates: start: 20090810, end: 20090909
  4. INVESTIGATIONAL DRUG [Concomitant]
     Dates: start: 20090910, end: 20090916
  5. METOPROLOL [Concomitant]
     Dates: start: 20090120
  6. CILAZAPRIL [Concomitant]
     Dates: start: 20090120
  7. GLIMEPIRIDE [Concomitant]
     Dates: start: 20090210
  8. METFORMIN [Concomitant]
     Dates: start: 20090210

REACTIONS (3)
  - BLOOD CREATININE INCREASED [None]
  - BLOOD SODIUM DECREASED [None]
  - FEBRILE NEUTROPENIA [None]
